FAERS Safety Report 16129448 (Version 2)
Quarter: 2020Q2

REPORT INFORMATION
  Report Type: Spontaneous
  Country: CH (occurrence: CH)
  Receive Date: 20190328
  Receipt Date: 20200629
  Transmission Date: 20200713
  Serious: Yes (Hospitalization, Other)
  Sender: FDA-Public Use
  Company Number: CH-OTSUKA-2019_008654

PATIENT
  Age: 58 Year
  Sex: Female

DRUGS (9)
  1. DULOXETINE. [Interacting]
     Active Substance: DULOXETINE
     Indication: PSYCHOTIC DISORDER
     Dosage: UNK
     Route: 048
     Dates: end: 201810
  2. LATUDA [Concomitant]
     Active Substance: LURASIDONE HYDROCHLORIDE
     Dosage: 40 MG, UNK
     Route: 065
     Dates: start: 20190321, end: 20190408
  3. LATUDA [Concomitant]
     Active Substance: LURASIDONE HYDROCHLORIDE
     Indication: PRODUCT USED FOR UNKNOWN INDICATION
     Dosage: 20 MG, UNK
     Route: 065
     Dates: start: 20190319, end: 20190321
  4. LAMOTRIGINE. [Concomitant]
     Active Substance: LAMOTRIGINE
     Indication: PRODUCT USED FOR UNKNOWN INDICATION
     Dosage: UNK
     Route: 065
     Dates: start: 20190416
  5. ABILIFY [Suspect]
     Active Substance: ARIPIPRAZOLE
     Indication: BIPOLAR DISORDER
     Dosage: 10 MG, QD
     Route: 048
     Dates: end: 20190310
  6. ABILIFY [Interacting]
     Active Substance: ARIPIPRAZOLE
     Indication: PSYCHOTIC DISORDER
  7. SEROQUEL [Interacting]
     Active Substance: QUETIAPINE FUMARATE
     Indication: BIPOLAR DISORDER
     Dosage: 200 MG IN THE EVENINGS
     Route: 048
     Dates: end: 20190310
  8. SEROQUEL [Interacting]
     Active Substance: QUETIAPINE FUMARATE
     Indication: PSYCHOTIC DISORDER
  9. DULOXETINE. [Interacting]
     Active Substance: DULOXETINE
     Indication: BIPOLAR DISORDER
     Dosage: INCREASED DOSE TO 120 MG/DAY
     Route: 048
     Dates: start: 201810, end: 20190310

REACTIONS (11)
  - Blood creatine phosphokinase increased [Unknown]
  - Hyperreflexia [Unknown]
  - Abdominal distension [Unknown]
  - Pollakiuria [Unknown]
  - Dry mouth [Unknown]
  - Neurotoxicity [Recovering/Resolving]
  - Product use in unapproved indication [Unknown]
  - Parkinsonism [Unknown]
  - Incontinence [Unknown]
  - Hyperhidrosis [Not Recovered/Not Resolved]
  - Overdose [Unknown]

NARRATIVE: CASE EVENT DATE: 201903
